FAERS Safety Report 6571543-X (Version None)
Quarter: 2010Q1

REPORT INFORMATION
  Report Type: 
  Country: None (occurrence: None)
  Receive Date: 20100205
  Receipt Date: 20100128
  Transmission Date: 20100710
  Serious: Yes (Hospitalization)
  Sender: FDA-Public Use
  Company Number: DE-JNJFOC-20100107755

PATIENT
  Age: 67 Year
  Sex: Female

DRUGS (4)
  1. HALDOL [Suspect]
     Indication: DRUG USE FOR UNKNOWN INDICATION
     Route: 048
     Dates: start: 20070503, end: 20070509
  2. OXCARBAZEPINE [Interacting]
     Indication: DRUG USE FOR UNKNOWN INDICATION
     Route: 048
     Dates: start: 20070503, end: 20070523
  3. LACTULOSE [Concomitant]
     Route: 048
     Dates: start: 20070504, end: 20070523
  4. PANTOZOL [Concomitant]
     Route: 048
     Dates: start: 20080504

REACTIONS (2)
  - DRUG INTERACTION [None]
  - LEUKOPENIA [None]
